FAERS Safety Report 4937323-3 (Version None)
Quarter: 2006Q1

REPORT INFORMATION
  Report Type: 
  Country: None (occurrence: None)
  Receive Date: 20060306
  Receipt Date: 20060223
  Transmission Date: 20060701
  Serious: Yes (Other)
  Sender: FDA-Public Use
  Company Number: 2005068183

PATIENT
  Age: 68 Year
  Sex: Female
  Weight: 54.4316 kg

DRUGS (2)
  1. XALATAN [Suspect]
     Indication: GLAUCOMA
     Dosage: 3 MCG (1.5 MCG, INTERVAL: EVERY NIGHT) OPHTHALMIC
     Route: 047
  2. DOMPERIDONE (DOMPERIDONE) [Concomitant]

REACTIONS (8)
  - CATARACT [None]
  - CORNEAL ABRASION [None]
  - DRY EYE [None]
  - EYE IRRITATION [None]
  - FOREIGN BODY SENSATION IN EYES [None]
  - INJURY CORNEAL [None]
  - LACRIMATION INCREASED [None]
  - OCULAR HYPERAEMIA [None]
